FAERS Safety Report 21151635 (Version 1)
Quarter: 2022Q3

REPORT INFORMATION
  Report Type: Spontaneous
  Country: US (occurrence: US)
  Receive Date: 20220730
  Receipt Date: 20220730
  Transmission Date: 20221027
  Serious: Yes (Other)
  Sender: FDA-Public Use
  Company Number: US-TEVA-2022-US-2059098

PATIENT
  Age: 69 Year
  Sex: Female

DRUGS (1)
  1. ESTRADIOL [Suspect]
     Active Substance: ESTRADIOL
     Indication: Product used for unknown indication
     Dosage: 10 MICROGRAM
     Route: 067
     Dates: start: 2022

REACTIONS (4)
  - Vulvovaginal injury [Unknown]
  - Injury associated with device [Unknown]
  - Vulvovaginal pain [Unknown]
  - Device issue [Unknown]

NARRATIVE: CASE EVENT DATE: 20220101
